FAERS Safety Report 5105918-2 (Version None)
Quarter: 2006Q3

REPORT INFORMATION
  Report Type: 
  Country: None (occurrence: None)
  Receive Date: 20060912
  Receipt Date: 20060831
  Transmission Date: 20061208
  Serious: Yes (Hospitalization)
  Sender: FDA-Public Use
  Company Number: 2006BI012450

PATIENT
  Age: 52 Year
  Sex: Male

DRUGS (9)
  1. AVONEX [Suspect]
     Indication: MULTIPLE SCLEROSIS
     Dosage: 30 UG;QW;IM
     Route: 030
     Dates: start: 20030101, end: 20060701
  2. AVALIDE [Concomitant]
  3. AVANDIA [Concomitant]
  4. GLIPIZIDE [Concomitant]
  5. LEVEMIR [Concomitant]
  6. NORVASC [Concomitant]
  7. TRICOR [Concomitant]
  8. TOPAMAX [Concomitant]
  9. ADVICOR [Concomitant]

REACTIONS (7)
  - AMNESIA [None]
  - ANXIETY [None]
  - CORONARY ARTERY OCCLUSION [None]
  - DEPRESSION [None]
  - FALL [None]
  - MYOCARDIAL INFARCTION [None]
  - RESORPTION BONE INCREASED [None]
